FAERS Safety Report 18476571 (Version 1)
Quarter: 2020Q4

REPORT INFORMATION
  Report Type: Spontaneous
  Country: CN (occurrence: CN)
  Receive Date: 20201107
  Receipt Date: 20201107
  Transmission Date: 20210114
  Serious: Yes (Death, Other)
  Sender: FDA-Public Use
  Company Number: CN-AUROBINDO-AUR-APL-2020-055895

PATIENT
  Age: 59 Year
  Sex: Male

DRUGS (14)
  1. CISPLATIN. [Suspect]
     Active Substance: CISPLATIN
     Indication: MANTLE CELL LYMPHOMA
     Dosage: 2 CYCLES
     Route: 065
     Dates: start: 201508
  2. CYCLOPHOSPHAMIDE. [Suspect]
     Active Substance: CYCLOPHOSPHAMIDE
     Indication: MANTLE CELL LYMPHOMA
     Dosage: 3 CYCLES
     Route: 065
     Dates: start: 201508
  3. CARTELOL [Suspect]
     Active Substance: CARTEOLOL HYDROCHLORIDE
     Indication: IRIDOCYCLITIS
     Dosage: 2 PERCENT
     Route: 065
  4. DOXORUBICIN [Suspect]
     Active Substance: DOXORUBICIN
     Indication: MANTLE CELL LYMPHOMA
     Dosage: 3 CYCLES
     Route: 065
     Dates: start: 201508
  5. METHOTREXATE. [Suspect]
     Active Substance: METHOTREXATE
     Indication: PRODUCT USED FOR UNKNOWN INDICATION
     Dosage: 400 MICROGRAM/0.1 ML
     Route: 042
  6. VINCRISTINE SULFATE. [Suspect]
     Active Substance: VINCRISTINE SULFATE
     Indication: MANTLE CELL LYMPHOMA
     Dosage: 3 CYCLES
     Route: 065
     Dates: start: 201508
  7. ETOPOSIDE. [Suspect]
     Active Substance: ETOPOSIDE
     Indication: MANTLE CELL LYMPHOMA
     Dosage: UNK
     Route: 065
     Dates: start: 201508
  8. MELPHALAN. [Suspect]
     Active Substance: MELPHALAN
     Indication: MANTLE CELL LYMPHOMA
     Dosage: UNK
     Route: 065
     Dates: start: 201508
  9. PREDNISONE. [Suspect]
     Active Substance: PREDNISONE
     Indication: MANTLE CELL LYMPHOMA
     Dosage: 3 CYCLES
     Route: 065
     Dates: start: 201508
  10. DEXAMETHASONE. [Suspect]
     Active Substance: DEXAMETHASONE
     Indication: MANTLE CELL LYMPHOMA
     Dosage: 2 CYCLES
     Route: 065
     Dates: start: 201508
  11. RITUXIMAB. [Suspect]
     Active Substance: RITUXIMAB
     Indication: MANTLE CELL LYMPHOMA
     Dosage: 3 CYCLES
     Route: 065
     Dates: start: 201508
  12. PREDNISONE ACETATE [Suspect]
     Active Substance: PREDNISONE ACETATE
     Indication: IRIDOCYCLITIS
     Dosage: 1 PERCENT 8 TIMES DAILY
     Route: 065
  13. CYTARABINE. [Suspect]
     Active Substance: CYTARABINE
     Indication: MANTLE CELL LYMPHOMA
     Dosage: 2 CYCLES
     Route: 065
     Dates: start: 201508
  14. TROPICAMIDE. [Suspect]
     Active Substance: TROPICAMIDE
     Indication: IRIDOCYCLITIS
     Dosage: UNK
     Route: 061

REACTIONS (1)
  - Death [Fatal]

NARRATIVE: CASE EVENT DATE: 201811
